FAERS Safety Report 5871063-1 (Version None)
Quarter: 2008Q3

REPORT INFORMATION
  Report Type: 
  Country: None (occurrence: None)
  Receive Date: 20080902
  Receipt Date: 20080822
  Transmission Date: 20090109
  Serious: Yes (Death, Hospitalization)
  Sender: FDA-Public Use
  Company Number: 237979J08USA

PATIENT
  Age: 69 Year
  Sex: Female

DRUGS (1)
  1. REBIF [Suspect]
     Indication: MULTIPLE SCLEROSIS
     Dosage: 44 MCG, 3 IN 1 WEEKS, SUBCUTANEOUS
     Route: 058
     Dates: start: 20080611, end: 20080709

REACTIONS (6)
  - BONE LESION [None]
  - BRAIN STEM SYNDROME [None]
  - DYSPHAGIA [None]
  - NEOPLASM [None]
  - PNEUMONIA ASPIRATION [None]
  - THYROID CANCER [None]
